FAERS Safety Report 19611408 (Version 2)
Quarter: 2021Q4

REPORT INFORMATION
  Report Type: Report from Study
  Country: BR (occurrence: BR)
  Receive Date: 20210726
  Receipt Date: 20211201
  Transmission Date: 20220303
  Serious: Yes (Other)
  Sender: FDA-Public Use
  Company Number: BR-TAKEDA-2021TUS045454

PATIENT
  Sex: Male
  Weight: 15.4 kg

DRUGS (4)
  1. HEMO-8R [Suspect]
     Active Substance: ANTIHEMOPHILIC FACTOR, HUMAN RECOMBINANT
     Indication: Factor VIII deficiency
     Dosage: 500 INTERNATIONAL UNIT, 3/WEEK (MONDAY, WEDNESDAY AND FRIDAY)
     Route: 042
  2. HEMO-8R [Suspect]
     Active Substance: ANTIHEMOPHILIC FACTOR, HUMAN RECOMBINANT
     Dosage: 1000 INTERNATIONAL UNIT, 3/WEEK
     Route: 042
     Dates: start: 20170820
  3. FEIBA NF [Suspect]
     Active Substance: ANTI-INHIBITOR COAGULANT COMPLEX
     Indication: Factor VIII deficiency
     Dosage: 1000 INTERNATIONAL UNIT, 2/WEEK, (TUESDAY AND THURSDAY)
     Route: 042
  4. FEIBA NF [Suspect]
     Active Substance: ANTI-INHIBITOR COAGULANT COMPLEX
     Dosage: 1500 INTERNATIONAL UNIT, 2/WEEK
     Route: 042
     Dates: start: 20170820

REACTIONS (2)
  - Vascular rupture [Unknown]
  - Factor VIII inhibition [Unknown]
